FAERS Safety Report 20477274 (Version 1)
Quarter: 2022Q1

REPORT INFORMATION
  Report Type: Spontaneous
  Country: US (occurrence: US)
  Receive Date: 20220215
  Receipt Date: 20220215
  Transmission Date: 20220423
  Serious: Yes (Other)
  Sender: FDA-Public Use
  Company Number: US-SA-SAC20220214001338

PATIENT
  Sex: Male

DRUGS (2)
  1. DUPIXENT [Suspect]
     Active Substance: DUPILUMAB
     Indication: Dermatitis atopic
     Dosage: 300 MG, QOW
     Route: 058
  2. DUPIXENT [Suspect]
     Active Substance: DUPILUMAB
     Indication: Folliculitis

REACTIONS (8)
  - Brain neoplasm [Unknown]
  - Lyme disease [Unknown]
  - COVID-19 pneumonia [Unknown]
  - Illness [Unknown]
  - Scar [Unknown]
  - Mass [Unknown]
  - Parosmia [Unknown]
  - Product use in unapproved indication [Unknown]
